FAERS Safety Report 5411341-3 (Version None)
Quarter: 2007Q3

REPORT INFORMATION
  Report Type: 
  Country: None (occurrence: None)
  Receive Date: 20070810
  Receipt Date: 20070806
  Transmission Date: 20080115
  Serious: Yes (Hospitalization)
  Sender: FDA-Public Use
  Company Number: FRWYE143407AUG07

PATIENT
  Sex: Female
  Weight: 65 kg

DRUGS (12)
  1. EFFEXOR XR [Interacting]
     Dosage: 75 MG TOTAL DAILY
     Route: 048
     Dates: start: 20070412, end: 20070415
  2. EFFEXOR XR [Interacting]
     Dosage: 150 MG TOTAL DAILY
     Route: 048
     Dates: start: 20070416, end: 20070416
  3. CLONAZEPAM [Concomitant]
     Dosage: UNKNOWN
     Dates: start: 20070401
  4. PERFALGAN [Concomitant]
     Dosage: UNKNOWN
     Dates: start: 20070401
  5. LAROXYL [Interacting]
     Dosage: 20 DROPS TOTAL DAILY
     Route: 048
     Dates: start: 20070402, end: 20070416
  6. LOXEN [Concomitant]
     Dosage: UNKNOWN
  7. LYRICA [Suspect]
     Dosage: UNKNOWN
     Route: 048
     Dates: start: 20070330, end: 20070416
  8. LORAZEPAM [Concomitant]
     Dosage: UNKNOWN
  9. NEXIUM [Concomitant]
     Dosage: UNKNOWN
  10. LEVOTHYROXINE SODIUM [Concomitant]
     Dosage: UNKNOWN
  11. CONTRAMAL [Interacting]
     Dosage: 300 MG TOTAL DAILY
     Route: 048
     Dates: start: 20070329, end: 20070416
  12. SEVREDOL [Concomitant]
     Dosage: IF NECESSARY
     Dates: start: 20070401

REACTIONS (9)
  - BLOOD GLUCOSE INCREASED [None]
  - C-REACTIVE PROTEIN INCREASED [None]
  - COMA [None]
  - DRUG INTERACTION [None]
  - HAEMOGLOBIN DECREASED [None]
  - LIPASE INCREASED [None]
  - MYDRIASIS [None]
  - PLATELET COUNT INCREASED [None]
  - URINARY TRACT INFECTION [None]
